FAERS Safety Report 10163274 (Version 1)
Quarter: 2014Q2

REPORT INFORMATION
  Report Type: Spontaneous
  Country: US (occurrence: US)
  Receive Date: 20140509
  Receipt Date: 20140509
  Transmission Date: 20141212
  Serious: No
  Sender: FDA-Public Use
  Company Number: US-ASTRAZENECA-2014SE20777

PATIENT
  Sex: Female

DRUGS (2)
  1. FASLODEX [Suspect]
     Route: 030
  2. FASLODEX [Suspect]
     Route: 030

REACTIONS (2)
  - Injection site pain [Unknown]
  - Drug administration error [Unknown]
